FAERS Safety Report 9347248 (Version 2)
Quarter: 2013Q3

REPORT INFORMATION
  Report Type: Spontaneous
  Country: GB (occurrence: GB)
  Receive Date: 20130613
  Receipt Date: 20130702
  Transmission Date: 20140515
  Serious: Yes (Other)
  Sender: FDA-Public Use
  Company Number: GB-VERTEX PHARMACEUTICALS INC-2013-007038

PATIENT
  Sex: Male
  Weight: 69.9 kg

DRUGS (7)
  1. INCIVO [Suspect]
     Indication: HEPATITIS C
     Dosage: 1125 MG, BID
     Route: 048
     Dates: start: 20130430, end: 20130507
  2. PEG-INTERFERON [Concomitant]
     Indication: HEPATITIS C
     Dosage: 108 ?G, QW
     Dates: start: 20130430, end: 20130507
  3. REBETOL [Concomitant]
     Indication: HEPATITIS C
     Dosage: 1 G, QD
     Dates: start: 20130430, end: 20130507
  4. ETRAVIRINE [Concomitant]
     Indication: PRODUCT USED FOR UNKNOWN INDICATION
  5. RALTEGRAVIR [Concomitant]
     Indication: PRODUCT USED FOR UNKNOWN INDICATION
  6. ATAZANAVIR [Concomitant]
     Indication: PRODUCT USED FOR UNKNOWN INDICATION
  7. RITONAVIR [Concomitant]
     Indication: PRODUCT USED FOR UNKNOWN INDICATION

REACTIONS (4)
  - Decreased appetite [Unknown]
  - Anxiety [Unknown]
  - Fatigue [Unknown]
  - Off label use [Unknown]
